FAERS Safety Report 17460713 (Version 1)
Quarter: 2020Q1

REPORT INFORMATION
  Report Type: Spontaneous
  Country: US (occurrence: US)
  Receive Date: 20200225
  Receipt Date: 20200225
  Transmission Date: 20200409
  Serious: Yes (Hospitalization)
  Sender: FDA-Public Use
  Company Number: None

PATIENT
  Age: 65 Year
  Sex: Male

DRUGS (1)
  1. AXICABTAGENE CILOLEUCEL [Suspect]
     Active Substance: AXICABTAGENE CILOLEUCEL

REACTIONS (4)
  - Neurotoxicity [None]
  - Alanine aminotransferase increased [None]
  - Aspartate aminotransferase increased [None]
  - Cytokine release syndrome [None]

NARRATIVE: CASE EVENT DATE: 20200206
